FAERS Safety Report 21261198 (Version 1)
Quarter: 2022Q3

REPORT INFORMATION
  Report Type: Spontaneous
  Country: None (occurrence: US)
  Receive Date: 20220826
  Receipt Date: 20220826
  Transmission Date: 20221027
  Serious: Yes (Hospitalization, Other)
  Sender: FDA-Public Use
  Company Number: US-Canton Laboratories, LLC-2132297

PATIENT
  Age: 67 Year
  Sex: Male

DRUGS (6)
  1. NAPROSYN [Suspect]
     Active Substance: NAPROXEN
     Indication: Osteoarthritis
  2. IBUPROFEN [Suspect]
     Active Substance: IBUPROFEN
  3. ATENOLOL [Concomitant]
     Active Substance: ATENOLOL
  4. ALLOPURINOL [Concomitant]
     Active Substance: ALLOPURINOL
  5. PRAVASTATIN [Concomitant]
     Active Substance: PRAVASTATIN
  6. HYDROCHLOROTHIAZIDE [Concomitant]
     Active Substance: HYDROCHLOROTHIAZIDE

REACTIONS (7)
  - Renal arteriosclerosis [Recovered/Resolved]
  - Acute kidney injury [Recovered/Resolved]
  - Kidney fibrosis [Recovered/Resolved]
  - Renal tubular atrophy [Recovered/Resolved]
  - IgM nephropathy [Recovered/Resolved]
  - Nephrotic syndrome [Recovered/Resolved]
  - Extra dose administered [Recovered/Resolved]
